FAERS Safety Report 10085572 (Version 2)
Quarter: 2014Q2

REPORT INFORMATION
  Report Type: Spontaneous
  Country: CN (occurrence: CN)
  Receive Date: 20140418
  Receipt Date: 20140424
  Transmission Date: 20141212
  Serious: Yes (Life-Threatening)
  Sender: FDA-Public Use
  Company Number: CN-009507513-1404CHN010273

PATIENT
  Age: 7 Year
  Sex: Female
  Weight: 25 kg

DRUGS (2)
  1. SINGULAIR (LOCAL DIST) [Suspect]
     Dosage: DAILY
     Route: 048
     Dates: start: 20130322, end: 2013
  2. LOTENSIN (BENAZEPRIL HYDROCHLORIDE) [Concomitant]
     Dosage: DAILY
     Route: 048
     Dates: start: 20130221, end: 20130330

REACTIONS (1)
  - Mental disorder [Recovering/Resolving]
